FAERS Safety Report 9966375 (Version 1)
Quarter: 2014Q1

REPORT INFORMATION
  Report Type: Report from Study
  Country: US (occurrence: US)
  Receive Date: 20140305
  Receipt Date: 20140305
  Transmission Date: 20141002
  Serious: Yes (Other)
  Sender: FDA-Public Use
  Company Number: US-PFIZER INC-2014055332

PATIENT
  Age: 69 Year
  Sex: Male

DRUGS (4)
  1. OXALIPLATIN [Suspect]
     Indication: RECTAL CANCER
     Dosage: CYCLIC
  2. LEUCOVORIN [Suspect]
     Indication: RECTAL CANCER
     Dosage: CYCLIC
  3. FLUOROURACIL [Suspect]
     Indication: RECTAL CANCER
     Dosage: CYCLIC
  4. BEVACIZUMAB [Suspect]
     Indication: RECTAL CANCER
     Dosage: CYCLIC

REACTIONS (1)
  - Angina pectoris [Unknown]
